FAERS Safety Report 19956655 (Version 1)
Quarter: 2021Q4

REPORT INFORMATION
  Report Type: Spontaneous
  Country: US (occurrence: US)
  Receive Date: 20211014
  Receipt Date: 20211014
  Transmission Date: 20220303
  Serious: Yes (Other)
  Sender: FDA-Public Use
  Company Number: US-TEVA-2021-US-1964462

PATIENT
  Sex: Female

DRUGS (2)
  1. METOPROLOL SUCCINATE [Suspect]
     Active Substance: METOPROLOL SUCCINATE
     Indication: Atrial fibrillation
     Route: 065
  2. METOPROLOL SUCCINATE [Suspect]
     Active Substance: METOPROLOL SUCCINATE
     Route: 065

REACTIONS (9)
  - Atrial fibrillation [Unknown]
  - Loss of personal independence in daily activities [Unknown]
  - Diarrhoea [Unknown]
  - Abdominal pain upper [Unknown]
  - Tension [Unknown]
  - Chest discomfort [Unknown]
  - Discomfort [Unknown]
  - Reaction to excipient [Unknown]
  - Anxiety [Unknown]
